FAERS Safety Report 8099928 (Version 5)
Quarter: 2013Q1

REPORT INFORMATION
  Report Type: Spontaneous
  Country: US (occurrence: US)
  Receive Date: 20110822
  Receipt Date: 20130226
  Transmission Date: 20140127
  Serious: Yes (Hospitalization, Other)
  Sender: FDA-Public Use
  Company Number: US-ROCHE-797622

PATIENT
  Age: 19 None
  Sex: Male
  Weight: 74.91 kg

DRUGS (1)
  1. ACCUTANE [Suspect]
     Indication: ACNE
     Route: 065
     Dates: start: 199911, end: 200002

REACTIONS (5)
  - Colitis ulcerative [Not Recovered/Not Resolved]
  - Inflammatory bowel disease [Not Recovered/Not Resolved]
  - Injury [Unknown]
  - Ileus [Unknown]
  - Irritable bowel syndrome [Not Recovered/Not Resolved]
